FAERS Safety Report 25312179 (Version 2)
Quarter: 2025Q2

REPORT INFORMATION
  Report Type: Spontaneous
  Country: US (occurrence: US)
  Receive Date: 20250510
  Receipt Date: 20250602
  Transmission Date: 20250717
  Serious: Yes (Other)
  Sender: NOVO NORDISK
  Company Number: US-NOVOPROD-1413945

PATIENT

DRUGS (2)
  1. TRESIBA [Suspect]
     Active Substance: INSULIN DEGLUDEC
  2. TRESIBA [Suspect]
     Active Substance: INSULIN DEGLUDEC
     Indication: Type 1 diabetes mellitus

REACTIONS (4)
  - Diabetic ketoacidosis [Not Recovered/Not Resolved]
  - Device failure [Unknown]
  - Device leakage [Unknown]
  - Sinusitis [Unknown]

NARRATIVE: CASE EVENT DATE: 20250401
